FAERS Safety Report 25140367 (Version 1)
Quarter: 2025Q1

REPORT INFORMATION
  Report Type: Spontaneous
  Country: US (occurrence: None)
  Receive Date: 20250328
  Receipt Date: 20250328
  Transmission Date: 20250409
  Serious: Yes (Death)
  Sender: FDA-CTU
  Company Number: None

PATIENT
  Age: 61 Year
  Sex: Female

DRUGS (1)
  1. ZEPBOUND [Suspect]
     Active Substance: TIRZEPATIDE
     Indication: Weight control

REACTIONS (8)
  - Cholangiocarcinoma [None]
  - Metastases to lung [None]
  - Biliary obstruction [None]
  - Liver disorder [None]
  - Disease complication [None]
  - Biliary catheter insertion [None]
  - Procedural failure [None]
  - Complication associated with device [None]

NARRATIVE: CASE EVENT DATE: 20240618
